FAERS Safety Report 24434383 (Version 7)
Quarter: 2025Q4

REPORT INFORMATION
  Report Type: Report from Study
  Country: US (occurrence: US)
  Receive Date: 20241014
  Receipt Date: 20251215
  Transmission Date: 20260117
  Serious: No
  Sender: PFIZER
  Company Number: US-PFIZER INC-PV202400132081

PATIENT
  Age: 91 Year
  Sex: Female

DRUGS (1)
  1. XELJANZ XR [Suspect]
     Active Substance: TOFACITINIB CITRATE
     Dosage: 11 MG

REACTIONS (6)
  - Flatulence [Recovered/Resolved]
  - Blood pressure abnormal [Unknown]
  - Illness [Unknown]
  - Memory impairment [Unknown]
  - Confusional state [Unknown]
  - Headache [Unknown]
